FAERS Safety Report 6266132-0 (Version None)
Quarter: 2009Q3

REPORT INFORMATION
  Report Type: 
  Country: None (occurrence: None)
  Receive Date: 20090713
  Receipt Date: 20090709
  Transmission Date: 20100115
  Serious: Yes (Death)
  Sender: FDA-Public Use
  Company Number: CN-BRISTOL-MYERS SQUIBB COMPANY-14697908

PATIENT
  Age: 68 Year
  Sex: Female

DRUGS (2)
  1. PACLITAXEL [Suspect]
     Indication: GASTRIC CANCER
     Dates: start: 20090707, end: 20090709
  2. LAPATINIB [Suspect]
     Indication: GASTRIC CANCER
     Dates: start: 20090707, end: 20090709

REACTIONS (1)
  - CARDIAC ARREST [None]
